FAERS Safety Report 7422696-2 (Version None)
Quarter: 2011Q2

REPORT INFORMATION
  Report Type: 
  Country: None (occurrence: None)
  Receive Date: 20110419
  Receipt Date: 20110411
  Transmission Date: 20111010
  Serious: Yes (Other)
  Sender: FDA-Public Use
  Company Number: CA-TEVA-276365USA

PATIENT
  Age: 62 Year
  Sex: Female

DRUGS (14)
  1. HYDROXOCOBALAMIN [Concomitant]
  2. ESOMEPRAZOLE MAGNESIUM [Concomitant]
  3. PROGESTERONE [Concomitant]
  4. BUPROPION HYDROCHLORIDE [Concomitant]
  5. INOSINE PRANOBEX [Concomitant]
  6. GABAPENTIN [Suspect]
     Dosage: 2400 MILLIGRAM;
  7. THYROID TAB [Concomitant]
  8. LIOTHYRONINE SODIUM [Concomitant]
  9. TRAMADOL HCL [Concomitant]
  10. CYANOCOBALAMIN [Concomitant]
  11. CORTISONE [Concomitant]
  12. DICLOFENAC [Concomitant]
  13. SIBUTRAMINE HYDROCHLORIDE [Concomitant]
  14. NORTRIPTYLINE [Concomitant]

REACTIONS (2)
  - PAPILLOEDEMA [None]
  - VISION BLURRED [None]
